FAERS Safety Report 6769770-1 (Version None)
Quarter: 2010Q2

REPORT INFORMATION
  Report Type: 
  Country: None (occurrence: None)
  Receive Date: 20100615
  Receipt Date: 20100607
  Transmission Date: 20101027
  Serious: Yes (Other)
  Sender: FDA-Public Use
  Company Number: PL-ROCHE-708602

PATIENT
  Age: 45 Year
  Sex: Female

DRUGS (4)
  1. HERCEPTIN [Suspect]
     Indication: BREAST CANCER
     Dosage: LOADING DOSE
     Route: 065
     Dates: start: 20070401
  2. HERCEPTIN [Suspect]
     Dosage: MAINTAINENCE DOSE
     Route: 065
  3. HERCEPTIN [Suspect]
     Dosage: LOADING DOSE
     Route: 065
     Dates: start: 20100101
  4. HERCEPTIN [Suspect]
     Dosage: MAINTAINENCE DOSE
     Route: 065

REACTIONS (5)
  - ABDOMINAL PAIN [None]
  - ASTHENIA [None]
  - BREAST CANCER RECURRENT [None]
  - COUGH [None]
  - EJECTION FRACTION DECREASED [None]
